FAERS Safety Report 9187455 (Version 1)
Quarter: 2013Q1

REPORT INFORMATION
  Report Type: Report from Study
  Country: JP (occurrence: JP)
  Receive Date: 20130325
  Receipt Date: 20130325
  Transmission Date: 20140127
  Serious: Yes (Other)
  Sender: FDA-Public Use
  Company Number: JP-JNJFOC-20130314928

PATIENT
  Age: 76 Year
  Sex: Male
  Weight: 62 kg

DRUGS (7)
  1. RIVAROXABAN [Suspect]
     Indication: ATRIAL FIBRILLATION
     Route: 048
     Dates: start: 20120807, end: 20121104
  2. RIVAROXABAN [Suspect]
     Indication: THROMBOSIS PROPHYLAXIS
     Route: 048
     Dates: start: 20120807, end: 20121104
  3. RIVAROXABAN [Suspect]
     Indication: CEREBROVASCULAR ACCIDENT PROPHYLAXIS
     Route: 048
     Dates: start: 20120807, end: 20121104
  4. HARNAL [Concomitant]
     Route: 048
  5. GASTER D [Concomitant]
     Route: 048
  6. LEVOTOMIN [Concomitant]
     Route: 048
  7. LANIRAPID [Concomitant]
     Route: 048

REACTIONS (1)
  - Renal impairment [Not Recovered/Not Resolved]
